FAERS Safety Report 13642644 (Version 2)
Quarter: 2017Q4

REPORT INFORMATION
  Report Type: Spontaneous
  Country: JP (occurrence: JP)
  Receive Date: 20170612
  Receipt Date: 20171127
  Transmission Date: 20180320
  Serious: Yes (Death, Life-Threatening, Other)
  Sender: FDA-Public Use
  Company Number: JP-BAYER-2017-104720

PATIENT
  Age: 61 Year
  Sex: Male
  Weight: 63.8 kg

DRUGS (3)
  1. NEXAVAR [Suspect]
     Active Substance: SORAFENIB
     Indication: HEPATOCELLULAR CARCINOMA
     Dosage: 400 MG, QD
     Route: 048
     Dates: start: 20170304, end: 20170306
  2. TRAMACET [PARACETAMOL,TRAMADOL] [Concomitant]
     Indication: CANCER PAIN
     Dosage: 4 DF, QD
     Route: 048
     Dates: start: 20170304, end: 20170306
  3. RABEPRAZOLE [Concomitant]
     Active Substance: RABEPRAZOLE
     Indication: GASTROOESOPHAGEAL REFLUX DISEASE
     Dosage: 10 MG, QD
     Route: 048
     Dates: start: 20170224, end: 20170510

REACTIONS (4)
  - Hypoglycaemia [Recovering/Resolving]
  - Hepatocellular carcinoma [Fatal]
  - Tumour lysis syndrome [Recovering/Resolving]
  - Altered state of consciousness [Recovering/Resolving]

NARRATIVE: CASE EVENT DATE: 20170306
